FAERS Safety Report 15429492 (Version 5)
Quarter: 2020Q4

REPORT INFORMATION
  Report Type: Report from Study
  Country: CO (occurrence: CO)
  Receive Date: 20180926
  Receipt Date: 20201112
  Transmission Date: 20210113
  Serious: Yes (Hospitalization, Other)
  Sender: FDA-Public Use
  Company Number: CO-ASTELLAS-2018US041819

PATIENT
  Age: 72 Year
  Sex: Male
  Weight: 63 kg

DRUGS (6)
  1. ENZALUTAMIDE [Suspect]
     Active Substance: ENZALUTAMIDE
     Indication: HORMONE-REFRACTORY PROSTATE CANCER
     Route: 048
     Dates: start: 20150227, end: 201808
  2. ENZALUTAMIDE [Suspect]
     Active Substance: ENZALUTAMIDE
     Route: 048
     Dates: start: 202010
  3. ADVIL [IBUPROFEN] [Suspect]
     Active Substance: IBUPROFEN
     Indication: PRODUCT USED FOR UNKNOWN INDICATION
     Dosage: UNK, UNKNOWN FREQ. (ON EMPTY STOMACH)
     Route: 065
  4. ENZALUTAMIDE [Suspect]
     Active Substance: ENZALUTAMIDE
     Route: 048
  5. ENZALUTAMIDE [Suspect]
     Active Substance: ENZALUTAMIDE
     Dosage: UNK UNK, (EVERY THIRD DAY)
     Route: 048
     Dates: start: 201812
  6. ENZALUTAMIDE [Suspect]
     Active Substance: ENZALUTAMIDE
     Dosage: UNK UNK, EVERY OTHER DAY
     Route: 048

REACTIONS (20)
  - Bronchitis chronic [Not Recovered/Not Resolved]
  - Prostatic specific antigen increased [Unknown]
  - Inappropriate schedule of product administration [Not Recovered/Not Resolved]
  - Constipation [Recovering/Resolving]
  - Haematuria [Recovered/Resolved]
  - Constipation [Recovered/Resolved]
  - Diarrhoea [Recovered/Resolved]
  - Back pain [Not Recovered/Not Resolved]
  - Vomiting [Recovered/Resolved]
  - Haematuria [Recovered/Resolved]
  - Abdominal pain upper [Recovered/Resolved]
  - Reflux gastritis [Not Recovered/Not Resolved]
  - Product supply issue [Unknown]
  - Melaena [Recovered/Resolved]
  - Constipation [Recovered/Resolved]
  - Diarrhoea [Recovered/Resolved]
  - Stenosis [Not Recovered/Not Resolved]
  - Lithiasis [Unknown]
  - Haematuria [Recovered/Resolved]
  - Food poisoning [Unknown]

NARRATIVE: CASE EVENT DATE: 201805
